FAERS Safety Report 4554581-8 (Version None)
Quarter: 2005Q1

REPORT INFORMATION
  Report Type: 
  Country: None (occurrence: None)
  Receive Date: 20050118
  Receipt Date: 20020918
  Transmission Date: 20050727
  Serious: Yes (Hospitalization)
  Sender: FDA-Public Use
  Company Number: FR-MERCK-0209FRA00046

PATIENT
  Age: 51 Year
  Sex: Male

DRUGS (8)
  1. STROMECTOL [Suspect]
     Indication: TOXOCARIASIS
     Route: 048
     Dates: start: 20020816, end: 20020816
  2. PYRANTEL PAMOATE [Concomitant]
     Indication: TOXOCARIASIS
     Route: 048
     Dates: start: 20020814, end: 20020814
  3. FLUBENDAZOLE [Concomitant]
     Indication: TOXOCARIASIS
     Route: 048
     Dates: start: 20020815, end: 20020817
  4. ALUMINUM HYDROXIDE AND MAGNESIUM TRISILICATE [Concomitant]
     Indication: OESOPHAGITIS
     Route: 065
  5. OMEPRAZOLE [Concomitant]
     Indication: OESOPHAGITIS
     Route: 065
  6. ZUCLOPENTHIXOL [Concomitant]
     Indication: PSYCHOTIC DISORDER
     Route: 048
  7. ZUCLOPENTHIXOL [Concomitant]
     Indication: DELUSION
     Route: 048
  8. [THERAPY UNSPECIFIED] [Concomitant]
     Route: 048

REACTIONS (1)
  - LEUKOCYTOCLASTIC VASCULITIS [None]
